FAERS Safety Report 7408359-8 (Version None)
Quarter: 2011Q2

REPORT INFORMATION
  Report Type: 
  Country: None (occurrence: None)
  Receive Date: 20110412
  Receipt Date: 20110404
  Transmission Date: 20111010
  Serious: Yes (Hospitalization)
  Sender: FDA-Public Use
  Company Number: US-JNJFOC-20110107846

PATIENT
  Sex: Female

DRUGS (5)
  1. VITAMIN D [Concomitant]
     Route: 048
  2. LEVAQUIN [Suspect]
     Indication: PNEUMONIA
     Route: 048
  3. HYDROCHLOROTHIAZIDE [Concomitant]
     Indication: BLOOD PRESSURE ABNORMAL
     Route: 048
  4. LEVAQUIN [Suspect]
     Route: 048
  5. SIMVASTATIN [Concomitant]
     Indication: BLOOD CHOLESTEROL ABNORMAL
     Route: 048

REACTIONS (2)
  - TENDON RUPTURE [None]
  - ROTATOR CUFF SYNDROME [None]
